FAERS Safety Report 10373667 (Version 1)
Quarter: 2014Q1

REPORT INFORMATION
  Report Type: Spontaneous
  Country: US (occurrence: None)
  Receive Date: 20140306
  Receipt Date: 20140306
  Transmission Date: 20141002
  Serious: Yes (Disabling, Other)
  Sender: FDA-Public Use
  Company Number: 163-21880-13051719

PATIENT
  Age: 84 Year
  Sex: Female

DRUGS (1)
  1. REVLIMID (LENALIDOMIDE) (10 MILLIGRAM, CAPSULES) [Suspect]
     Indication: PLASMA CELL MYELOMA
     Dosage: 10 MG, 21 IN 21 D, PO
     Route: 048
     Dates: start: 20120627

REACTIONS (5)
  - Neutrophil count decreased [None]
  - Haemoglobin decreased [None]
  - Platelet count decreased [None]
  - Drug ineffective [None]
  - White blood cell count decreased [None]
